FAERS Safety Report 19031154 (Version 1)
Quarter: 2021Q1

REPORT INFORMATION
  Report Type: Spontaneous
  Country: US (occurrence: US)
  Receive Date: 20210318
  Receipt Date: 20210318
  Transmission Date: 20210420
  Serious: Yes (Death, Hospitalization)
  Sender: FDA-Public Use
  Company Number: None

PATIENT
  Age: 2 Year
  Sex: Male
  Weight: 19 kg

DRUGS (7)
  1. CARBOPLATIN. [Suspect]
     Active Substance: CARBOPLATIN
     Dates: end: 20210215
  2. THIOTEPA. [Suspect]
     Active Substance: THIOTEPA
     Dates: end: 20201223
  3. G?CSF (FILGRASTIM,AMGEN) [Suspect]
     Active Substance: FILGRASTIM
     Dates: end: 20210223
  4. ETOPOSIDE (VP?16) [Suspect]
     Active Substance: ETOPOSIDE
     Dates: end: 20210215
  5. CYCLOPHOSPHAMIDE. [Suspect]
     Active Substance: CYCLOPHOSPHAMIDE
     Dates: end: 20201226
  6. MELPHALAN. [Suspect]
     Active Substance: MELPHALAN
     Dates: end: 20210214
  7. MESNA. [Suspect]
     Active Substance: MESNA
     Dates: end: 20201226

REACTIONS (16)
  - Mucosal inflammation [None]
  - Septic shock [None]
  - Thrombocytopenia [None]
  - Fluid overload [None]
  - Respiratory distress [None]
  - Multiple organ dysfunction syndrome [None]
  - Gastrointestinal haemorrhage [None]
  - Haematemesis [None]
  - Hepatomegaly [None]
  - Renal failure [None]
  - Ascites [None]
  - Coagulopathy [None]
  - Pyrexia [None]
  - Hepatorenal syndrome [None]
  - Stem cell transplant [None]
  - Hypotension [None]

NARRATIVE: CASE EVENT DATE: 20210221
